FAERS Safety Report 9867194 (Version 2)
Quarter: 2014Q1

REPORT INFORMATION
  Report Type: Spontaneous
  Country: US (occurrence: US)
  Receive Date: 20140204
  Receipt Date: 20140204
  Transmission Date: 20141002
  Serious: Yes (Death)
  Sender: FDA-Public Use
  Company Number: US-RANBAXY-2011US-45395

PATIENT
  Age: 63 Year
  Sex: Male

DRUGS (18)
  1. ACYCLOVIR [Suspect]
     Indication: ANTIBIOTIC PROPHYLAXIS
     Route: 065
  2. FLUCONAZOLE [Suspect]
     Indication: ANTIBIOTIC PROPHYLAXIS
     Route: 065
  3. MYCOPHENOLATE MOFETIL [Suspect]
     Indication: ACUTE GRAFT VERSUS HOST DISEASE
     Dosage: 1000 MG, TID
     Route: 048
  4. PREDNISONE [Suspect]
     Indication: POST TRANSPLANT LYMPHOPROLIFERATIVE DISORDER
     Route: 065
  5. VORICONAZOLE [Suspect]
     Indication: ANTIBIOTIC PROPHYLAXIS
     Route: 065
  6. RITUXIMAB [Suspect]
     Indication: POST TRANSPLANT LYMPHOPROLIFERATIVE DISORDER
     Dosage: UNK
     Route: 065
  7. RITUXIMAB [Suspect]
     Indication: ACUTE GRAFT VERSUS HOST DISEASE
     Dosage: 375 MG/M2, 1/WEEK
     Route: 065
  8. VINCRISTINE [Suspect]
     Indication: POST TRANSPLANT LYMPHOPROLIFERATIVE DISORDER
     Dosage: UNK
     Route: 065
  9. ETOPOSIDE [Suspect]
     Indication: POST TRANSPLANT LYMPHOPROLIFERATIVE DISORDER
     Dosage: UNK
     Route: 065
  10. CYCLOPHOSPHAMIDE [Suspect]
     Indication: POST TRANSPLANT LYMPHOPROLIFERATIVE DISORDER
     Dosage: UNK
     Route: 065
  11. DOXORUBICIN [Suspect]
     Indication: POST TRANSPLANT LYMPHOPROLIFERATIVE DISORDER
     Dosage: UNK
     Route: 065
  12. TACROLIMUS [Suspect]
     Indication: ACUTE GRAFT VERSUS HOST DISEASE
     Dosage: UNK
     Route: 042
  13. DACLIZUMAB [Suspect]
     Indication: ACUTE GRAFT VERSUS HOST DISEASE
     Dosage: 1MG/KG/DAY; DAY 1,4,8,15 AND DAY 22
     Route: 065
  14. ALEMTUZUMB [Suspect]
     Indication: ACUTE GRAFT VERSUS HOST DISEASE
     Dosage: 3 MG/DAY
     Route: 065
  15. ALEMTUZUMB [Suspect]
     Indication: ACUTE GRAFT VERSUS HOST DISEASE
     Dosage: 30 MG/DAY 3 TIMES A WEEK
     Route: 065
  16. ALEMTUZUMB [Suspect]
     Indication: ACUTE GRAFT VERSUS HOST DISEASE
     Dosage: 10 MG/DAY; 3 TIMES A WEEK
     Route: 065
  17. METHYLPREDNISOLONE [Suspect]
     Indication: ACUTE GRAFT VERSUS HOST DISEASE
     Route: 042
  18. PENTAMIDINE [Suspect]
     Indication: ACUTE GRAFT VERSUS HOST DISEASE
     Route: 055

REACTIONS (2)
  - Acanthamoeba infection [Fatal]
  - Pseudomonal sepsis [Fatal]
